FAERS Safety Report 7740803-9 (Version None)
Quarter: 2011Q3

REPORT INFORMATION
  Report Type: 
  Country: None (occurrence: None)
  Receive Date: 20110909
  Receipt Date: 20110826
  Transmission Date: 20111222
  Serious: Yes (Hospitalization)
  Sender: FDA-Public Use
  Company Number: JP-TYCO HEALTHCARE/MALLINCKRODT-T201101686

PATIENT
  Age: 45 Year
  Sex: Male

DRUGS (3)
  1. PENNSAID [Suspect]
  2. LOXOPROFEN [Suspect]
  3. CEFTRIAXONE [Suspect]

REACTIONS (3)
  - EPISTAXIS [None]
  - FACTOR VIII DEFICIENCY [None]
  - RASH [None]
